FAERS Safety Report 8591779-6 (Version None)
Quarter: 2012Q3

REPORT INFORMATION
  Report Type: 
  Country: None (occurrence: None)
  Receive Date: 20120814
  Receipt Date: 20120807
  Transmission Date: 20120928
  Serious: Yes (Hospitalization, Other)
  Sender: FDA-Public Use
  Company Number: PHHY2012CA032055

PATIENT
  Sex: Male

DRUGS (1)
  1. SANDOSTATIN LAR [Suspect]
     Indication: ACROMEGALY
     Dosage: 40 MG, EVERY 4 WEEKS
     Route: 030
     Dates: start: 20110708

REACTIONS (4)
  - ACUTE CORONARY SYNDROME [None]
  - BLOOD GROWTH HORMONE INCREASED [None]
  - CORONARY ARTERY OCCLUSION [None]
  - CHEST PAIN [None]
